FAERS Safety Report 5103217-6 (Version None)
Quarter: 2006Q3

REPORT INFORMATION
  Report Type: 
  Country: None (occurrence: None)
  Receive Date: 20060911
  Receipt Date: 20060911
  Transmission Date: 20061208
  Serious: Yes (Hospitalization)
  Sender: FDA-Public Use
  Company Number: None

PATIENT
  Sex: Female
  Weight: 47 kg

DRUGS (3)
  1. ERBITUX [Suspect]
     Indication: PANCREATIC CARCINOMA
     Dosage: 400 MG/M2X1, 250 MG/M2 WEEKLY
     Dates: start: 20060622, end: 20060810
  2. GEMCITABINE [Suspect]
     Dosage: 50MG/M2, BI-WKLY
     Dates: start: 20060627, end: 20060810
  3. RADIATION [Concomitant]

REACTIONS (24)
  - ABDOMINAL PAIN [None]
  - ABDOMINAL TENDERNESS [None]
  - ANOREXIA [None]
  - ASPARTATE AMINOTRANSFERASE INCREASED [None]
  - BLOOD ALBUMIN DECREASED [None]
  - BLOOD ALKALINE PHOSPHATASE INCREASED [None]
  - BLOOD CREATININE DECREASED [None]
  - BLOOD SODIUM DECREASED [None]
  - CACHEXIA [None]
  - EPIGASTRIC DISCOMFORT [None]
  - FAILURE TO THRIVE [None]
  - FALL [None]
  - HAEMOGLOBIN DECREASED [None]
  - INFLAMMATION [None]
  - LOSS OF CONSCIOUSNESS [None]
  - LUNG DISORDER [None]
  - NAUSEA [None]
  - NEUTROPENIA [None]
  - PAIN [None]
  - PANCREATIC MASS [None]
  - SUBDURAL HAEMATOMA [None]
  - THROMBOSIS [None]
  - VOMITING [None]
  - WEIGHT DECREASED [None]
